FAERS Safety Report 7577938-X (Version None)
Quarter: 2011Q2

REPORT INFORMATION
  Report Type: 
  Country: None (occurrence: None)
  Receive Date: 20110628
  Receipt Date: 20110623
  Transmission Date: 20111010
  Serious: Yes (Death, Other)
  Sender: FDA-Public Use
  Company Number: PHEH2009US07559

PATIENT
  Sex: Male

DRUGS (26)
  1. AMOXICILLIN [Concomitant]
  2. ASPIRIN [Concomitant]
  3. LIMBITROL [Concomitant]
  4. PRAVACHOL [Concomitant]
     Dosage: 20 MG, DAILY
  5. SUTENT [Concomitant]
  6. TORISEL [Concomitant]
  7. LORTAB [Concomitant]
  8. AVAPRO [Concomitant]
  9. NAPROSYN [Concomitant]
     Dosage: 220 MG, BID
  10. LEVOTHYROXINE SODIUM [Concomitant]
  11. CELEBREX [Concomitant]
  12. ELAVIL [Concomitant]
  13. METAMUCIL-2 [Concomitant]
  14. EFFEXOR XR [Concomitant]
  15. NEXIUM [Concomitant]
  16. COUMADIN [Concomitant]
  17. RELAFEN [Concomitant]
  18. OXYTOCIN [Concomitant]
  19. NEXAVAR [Concomitant]
  20. IBUPROFEN [Concomitant]
  21. CENTRUM SILVER [Concomitant]
  22. ZOMETA [Suspect]
     Indication: PROPHYLAXIS
     Dosage: 4 MG, UNK
  23. FLUOROURACIL [Concomitant]
  24. GEMZAR [Concomitant]
  25. PERIFUSIN [Concomitant]
  26. OXYCONTIN [Concomitant]

REACTIONS (84)
  - GENERAL PHYSICAL HEALTH DETERIORATION [None]
  - NEOPLASM PROGRESSION [None]
  - PIRIFORMIS SYNDROME [None]
  - MUSCULOSKELETAL CHEST PAIN [None]
  - LIMB DISCOMFORT [None]
  - TONGUE ULCERATION [None]
  - BONE PAIN [None]
  - POLLAKIURIA [None]
  - INJURY [None]
  - CEREBRAL SMALL VESSEL ISCHAEMIC DISEASE [None]
  - BUNDLE BRANCH BLOCK LEFT [None]
  - MALNUTRITION [None]
  - OEDEMA PERIPHERAL [None]
  - METASTATIC SQUAMOUS CELL CARCINOMA [None]
  - HYPOTHYROIDISM [None]
  - PYREXIA [None]
  - MUSCULOSKELETAL PAIN [None]
  - ASTHENIA [None]
  - ARTHRALGIA [None]
  - PERICARDITIS [None]
  - ARTHRITIS [None]
  - PAIN [None]
  - NEOPLASM MALIGNANT [None]
  - PATHOLOGICAL FRACTURE [None]
  - METASTASES TO SPINE [None]
  - RENAL DISORDER [None]
  - ANHEDONIA [None]
  - MYALGIA [None]
  - DEPRESSION [None]
  - ATELECTASIS [None]
  - TREMOR [None]
  - TINEL'S SIGN [None]
  - NEUROPATHY PERIPHERAL [None]
  - HYPERTENSION [None]
  - FOOT FRACTURE [None]
  - MUSCLE SPASMS [None]
  - CONTUSION [None]
  - ADRENAL MASS [None]
  - MENISCUS LESION [None]
  - DIVERTICULUM [None]
  - OSTEOLYSIS [None]
  - PALMAR-PLANTAR ERYTHRODYSAESTHESIA SYNDROME [None]
  - ADENOCARCINOMA [None]
  - CHEST DISCOMFORT [None]
  - LOBAR PNEUMONIA [None]
  - SLEEP APNOEA SYNDROME [None]
  - ESCHERICHIA BACTERAEMIA [None]
  - ARTERIOSCLEROSIS CORONARY ARTERY [None]
  - ANAEMIA [None]
  - PANCYTOPENIA [None]
  - GINGIVAL DISORDER [None]
  - NEPHROLITHIASIS [None]
  - RIB FRACTURE [None]
  - MUSCULOSKELETAL STIFFNESS [None]
  - LUNG NEOPLASM [None]
  - ERECTILE DYSFUNCTION [None]
  - THROMBOCYTOPENIA [None]
  - OSTEOMYELITIS [None]
  - ANXIETY [None]
  - SPINAL COLUMN STENOSIS [None]
  - INTERVERTEBRAL DISC DEGENERATION [None]
  - SPINAL CORD COMPRESSION [None]
  - PLEURAL EFFUSION [None]
  - MOUTH ULCERATION [None]
  - FATIGUE [None]
  - WEIGHT INCREASED [None]
  - MELANOCYTIC NAEVUS [None]
  - HEPATIC LESION [None]
  - CHOLELITHIASIS [None]
  - LEUKOPENIA [None]
  - TOOTHACHE [None]
  - MENTAL STATUS CHANGES [None]
  - VITAMIN B12 DEFICIENCY [None]
  - ULNA FRACTURE [None]
  - RENAL CANCER METASTATIC [None]
  - OSTEONECROSIS OF JAW [None]
  - DECREASED INTEREST [None]
  - VERTEBRAL FORAMINAL STENOSIS [None]
  - PAIN IN EXTREMITY [None]
  - RESTLESS LEGS SYNDROME [None]
  - HAND FRACTURE [None]
  - HYPOAESTHESIA [None]
  - DYSPEPSIA [None]
  - EXPOSED BONE IN JAW [None]
